FAERS Safety Report 9321411 (Version 1)
Quarter: 2013Q2

REPORT INFORMATION
  Report Type: Spontaneous
  Country: NL (occurrence: NL)
  Receive Date: 20130531
  Receipt Date: 20130531
  Transmission Date: 20140414
  Serious: Yes (Other)
  Sender: FDA-Public Use
  Company Number: NL-PFIZER INC-2013162592

PATIENT
  Age: 64 Year
  Sex: Female
  Weight: 55 kg

DRUGS (5)
  1. EXEMESTANE [Suspect]
     Indication: BREAST CANCER METASTATIC
     Dosage: 25 MG, 1X/DAY
     Dates: start: 20130325
  2. EVEROLIMUS [Interacting]
     Indication: BREAST CANCER METASTATIC
     Dosage: 5 MG, 1X/DAY
     Dates: start: 20130325, end: 20130409
  3. DENOSUMAB [Concomitant]
     Dosage: 1 DF, MONTHLY
     Dates: start: 20130311
  4. NAPROXEN [Concomitant]
     Dosage: 500 MG, 2X/DAY
     Dates: start: 20120619
  5. CALCICHEW-D3 [Concomitant]
     Dosage: 1 DF, 1X/DAY
     Dates: start: 20130305

REACTIONS (6)
  - Cardiac failure [Recovered/Resolved]
  - Hypertension [Recovered/Resolved]
  - Oedema peripheral [Recovering/Resolving]
  - Diarrhoea [Recovering/Resolving]
  - Mucosal inflammation [Recovering/Resolving]
  - Drug interaction [Unknown]
